FAERS Safety Report 10792629 (Version 3)
Quarter: 2015Q4

REPORT INFORMATION
  Report Type: Spontaneous
  Country: PE (occurrence: PE)
  Receive Date: 20150213
  Receipt Date: 20151224
  Transmission Date: 20160304
  Serious: Yes (Hospitalization, Other)
  Sender: FDA-Public Use
  Company Number: PE-PFIZER INC-2015054082

PATIENT
  Age: 54 Year
  Sex: Female

DRUGS (1)
  1. XALATAN [Suspect]
     Active Substance: LATANOPROST
     Indication: GLAUCOMA
     Dosage: 1 DROP, DAILY
     Route: 047

REACTIONS (9)
  - Optic nerve compression [Recovered/Resolved]
  - Myopia [Recovered/Resolved]
  - Blindness [Unknown]
  - Growth hormone-producing pituitary tumour [Recovered/Resolved]
  - Visual impairment [Not Recovered/Not Resolved]
  - Brain neoplasm [Recovered/Resolved]
  - Blood urine present [Recovered/Resolved]
  - Condition aggravated [Recovered/Resolved]
  - Acromegaly [Recovered/Resolved]

NARRATIVE: CASE EVENT DATE: 2015
